FAERS Safety Report 16264441 (Version 1)
Quarter: 2019Q2

REPORT INFORMATION
  Report Type: Spontaneous
  Country: US (occurrence: US)
  Receive Date: 20190502
  Receipt Date: 20190502
  Transmission Date: 20190711
  Serious: No
  Sender: FDA-Public Use
  Company Number: US-PFIZER INC-2019165510

PATIENT
  Age: 68 Year
  Sex: Male
  Weight: 65.95 kg

DRUGS (1)
  1. LYRICA [Suspect]
     Active Substance: PREGABALIN
     Indication: LUMBAR SPINAL STENOSIS
     Dosage: 75 MG, 2X/DAY
     Route: 048
     Dates: start: 201904, end: 201904

REACTIONS (2)
  - Euphoric mood [Recovered/Resolved]
  - Insomnia [Recovered/Resolved]
